FAERS Safety Report 7828508-7 (Version None)
Quarter: 2011Q4

REPORT INFORMATION
  Report Type: 
  Country: None (occurrence: None)
  Receive Date: 20111020
  Receipt Date: 20111020
  Transmission Date: 20120403
  Serious: Yes (Other)
  Sender: FDA-Public Use
  Company Number: None

PATIENT
  Sex: Male
  Weight: 70.306 kg

DRUGS (1)
  1. AUGMENTIN '875' [Suspect]
     Indication: SINUSITIS
     Dosage: 1 TABLET
     Route: 048
     Dates: start: 20110611, end: 20110619

REACTIONS (1)
  - PRURITUS [None]
